FAERS Safety Report 18416758 (Version 4)
Quarter: 2021Q1

REPORT INFORMATION
  Report Type: Spontaneous
  Country: US (occurrence: US)
  Receive Date: 20201022
  Receipt Date: 20210324
  Transmission Date: 20210419
  Serious: Yes (Other)
  Sender: FDA-Public Use
  Company Number: US-PFIZER INC-2020407683

PATIENT
  Age: 82 Year
  Sex: Female

DRUGS (1)
  1. XELJANZ [Suspect]
     Active Substance: TOFACITINIB CITRATE
     Dosage: 5 MG, UNK

REACTIONS (7)
  - Memory impairment [Unknown]
  - Hand deformity [Unknown]
  - Fall [Unknown]
  - Mental disorder [Unknown]
  - Diabetes mellitus [Unknown]
  - Concussion [Unknown]
  - Somnolence [Unknown]
